FAERS Safety Report 19360070 (Version 1)
Quarter: 2021Q2

REPORT INFORMATION
  Report Type: Report from Study
  Country: CN (occurrence: CN)
  Receive Date: 20210602
  Receipt Date: 20210602
  Transmission Date: 20210717
  Serious: Yes (Hospitalization)
  Sender: FDA-Public Use
  Company Number: CN-ASTRAZENECA-2021A407533

PATIENT
  Age: 57 Year
  Sex: Male
  Weight: 71 kg

DRUGS (44)
  1. DURVALUMAB. [Suspect]
     Active Substance: DURVALUMAB
     Indication: HEPATOCELLULAR CARCINOMA
     Dosage: 1120.0MG ONCE/SINGLE ADMINISTRATION
     Route: 042
     Dates: start: 20210203, end: 20210203
  2. DURVALUMAB. [Suspect]
     Active Substance: DURVALUMAB
     Indication: HEPATOCELLULAR CARCINOMA
     Dosage: 1120.0MG ONCE/SINGLE ADMINISTRATION
     Route: 042
     Dates: start: 20210317, end: 20210317
  3. METHYLPREDNISOLONE. [Concomitant]
     Active Substance: METHYLPREDNISOLONE
     Indication: COLITIS
     Dosage: 40.0MG AS REQUIRED
     Route: 042
     Dates: start: 20210510, end: 20210510
  4. PREDNISON [Concomitant]
     Active Substance: PREDNISONE
     Indication: SYMPTOMATIC TREATMENT
     Route: 048
     Dates: start: 20210430, end: 20210503
  5. PREDNISON [Concomitant]
     Active Substance: PREDNISONE
     Indication: COLITIS
     Dosage: 40.0MG ONCE/SINGLE ADMINISTRATION
     Route: 048
     Dates: start: 20210511
  6. STUDY PROCEDURE [Suspect]
     Active Substance: INVESTIGATIONAL PRODUCT
     Indication: HEPATOCELLULAR CARCINOMA
     Route: 065
  7. BEVACIZUMAB. [Suspect]
     Active Substance: BEVACIZUMAB
     Indication: HEPATOCELLULAR CARCINOMA
     Dosage: 1071.0MG ONCE/SINGLE ADMINISTRATION
     Route: 065
     Dates: start: 20210203, end: 20210203
  8. PREDNISON [Concomitant]
     Active Substance: PREDNISONE
     Indication: PROCTITIS
     Dosage: 45.0MG ONCE/SINGLE ADMINISTRATION
     Route: 048
     Dates: start: 20210504, end: 20210504
  9. PREDNISON [Concomitant]
     Active Substance: PREDNISONE
     Indication: PROCTITIS
     Dosage: 60.0MG ONCE/SINGLE ADMINISTRATION
     Route: 048
     Dates: start: 20210505, end: 20210506
  10. PREDNISON [Concomitant]
     Active Substance: PREDNISONE
     Indication: COLITIS
     Dosage: 35.0MG ONCE/SINGLE ADMINISTRATION
     Route: 048
     Dates: start: 20210507
  11. PREDNISON [Concomitant]
     Active Substance: PREDNISONE
     Indication: PROCTITIS
     Dosage: 40.0MG ONCE/SINGLE ADMINISTRATION
     Route: 048
     Dates: start: 20210511
  12. METHYLPREDNISOLONE. [Concomitant]
     Active Substance: METHYLPREDNISOLONE
     Indication: PROCTITIS
     Dosage: 60.0MG AS REQUIRED
     Route: 042
     Dates: start: 20210509, end: 20210509
  13. METHYLPREDNISOLONE. [Concomitant]
     Active Substance: METHYLPREDNISOLONE
     Indication: COLITIS
     Dosage: 60.0MG AS REQUIRED
     Route: 042
     Dates: start: 20210509, end: 20210509
  14. ELECTROLYTES NOS/CARBOHYDRATES NOS [Concomitant]
     Indication: ELECTROLYTE SUBSTITUTION THERAPY
     Route: 042
     Dates: start: 20210418, end: 20210426
  15. PREDNISON [Concomitant]
     Active Substance: PREDNISONE
     Indication: PROCTITIS
     Route: 048
     Dates: start: 20210430, end: 20210503
  16. PREDNISON [Concomitant]
     Active Substance: PREDNISONE
     Indication: SYMPTOMATIC TREATMENT
     Dosage: 35.0MG ONCE/SINGLE ADMINISTRATION
     Route: 048
     Dates: start: 20210507
  17. PREDNISON [Concomitant]
     Active Substance: PREDNISONE
     Indication: PROCTITIS
     Dosage: 35.0MG ONCE/SINGLE ADMINISTRATION
     Route: 048
     Dates: start: 20210507
  18. LANSOPRAZOLE. [Concomitant]
     Active Substance: LANSOPRAZOLE
     Indication: PROPHYLAXIS
     Dosage: 30.0MG AS REQUIRED
     Route: 048
     Dates: start: 20210426
  19. BEVACIZUMAB. [Suspect]
     Active Substance: BEVACIZUMAB
     Indication: HEPATOCELLULAR CARCINOMA
     Dosage: 1071.0MG ONCE/SINGLE ADMINISTRATION
     Route: 065
     Dates: start: 20210317, end: 20210317
  20. ENTECAVIR. [Concomitant]
     Active Substance: ENTECAVIR
     Indication: CHRONIC HEPATITIS B
     Route: 048
     Dates: start: 20201119
  21. METHYLPREDNISOLONE. [Concomitant]
     Active Substance: METHYLPREDNISOLONE
     Indication: COLITIS
     Dosage: 120.0MG AS REQUIRED
     Route: 042
     Dates: start: 20210508, end: 20210508
  22. PREDNISON [Concomitant]
     Active Substance: PREDNISONE
     Indication: SYMPTOMATIC TREATMENT
     Dosage: 45.0MG ONCE/SINGLE ADMINISTRATION
     Route: 048
     Dates: start: 20210504, end: 20210504
  23. PREDNISON [Concomitant]
     Active Substance: PREDNISONE
     Indication: SYMPTOMATIC TREATMENT
     Dosage: 40.0MG ONCE/SINGLE ADMINISTRATION
     Route: 048
     Dates: start: 20210511
  24. BEVACIZUMAB. [Suspect]
     Active Substance: BEVACIZUMAB
     Indication: HEPATOCELLULAR CARCINOMA
     Dosage: 1071.0MG ONCE/SINGLE ADMINISTRATION
     Route: 065
     Dates: start: 20210114, end: 20210114
  25. METHYLPREDNISOLONE. [Concomitant]
     Active Substance: METHYLPREDNISOLONE
     Indication: COLITIS
     Dosage: 60.0MG AS REQUIRED
     Route: 042
     Dates: start: 20210418, end: 20210423
  26. METHYLPREDNISOLONE. [Concomitant]
     Active Substance: METHYLPREDNISOLONE
     Indication: COLITIS
     Dosage: 80.0MG AS REQUIRED
     Route: 042
     Dates: start: 20210507, end: 20210507
  27. PREDNISON [Concomitant]
     Active Substance: PREDNISONE
     Indication: SYMPTOMATIC TREATMENT
     Route: 048
     Dates: start: 20210423, end: 20210429
  28. PREDNISON [Concomitant]
     Active Substance: PREDNISONE
     Indication: COLITIS
     Route: 048
     Dates: start: 20210423, end: 20210429
  29. PREDNISON [Concomitant]
     Active Substance: PREDNISONE
     Indication: PROCTITIS
     Route: 048
     Dates: start: 20210423, end: 20210429
  30. PREDNISON [Concomitant]
     Active Substance: PREDNISONE
     Indication: COLITIS
     Route: 048
     Dates: start: 20210430, end: 20210503
  31. PREDNISON [Concomitant]
     Active Substance: PREDNISONE
     Indication: SYMPTOMATIC TREATMENT
     Dosage: 60.0MG ONCE/SINGLE ADMINISTRATION
     Route: 048
     Dates: start: 20210505, end: 20210506
  32. DURVALUMAB. [Suspect]
     Active Substance: DURVALUMAB
     Indication: HEPATOCELLULAR CARCINOMA
     Dosage: 1120.0MG ONCE/SINGLE ADMINISTRATION
     Route: 042
     Dates: start: 20210223, end: 20210223
  33. BEVACIZUMAB. [Suspect]
     Active Substance: BEVACIZUMAB
     Indication: HEPATOCELLULAR CARCINOMA
     Dosage: 1071.0MG ONCE/SINGLE ADMINISTRATION
     Route: 065
     Dates: start: 20210223, end: 20210223
  34. METHYLPREDNISOLONE. [Concomitant]
     Active Substance: METHYLPREDNISOLONE
     Indication: PROCTITIS
     Dosage: 60.0MG AS REQUIRED
     Route: 042
     Dates: start: 20210418, end: 20210423
  35. METHYLPREDNISOLONE. [Concomitant]
     Active Substance: METHYLPREDNISOLONE
     Indication: PROCTITIS
     Dosage: 80.0MG AS REQUIRED
     Route: 042
     Dates: start: 20210507, end: 20210507
  36. OMEPRAZOLE SODIUM [Concomitant]
     Active Substance: OMEPRAZOLE SODIUM
     Indication: PROPHYLAXIS
     Route: 042
     Dates: start: 20210418, end: 20210429
  37. OMEPRAZOLE SODIUM [Concomitant]
     Active Substance: OMEPRAZOLE SODIUM
     Indication: GASTRIC PH DECREASED
     Route: 042
     Dates: start: 20210506, end: 20210512
  38. DURVALUMAB. [Suspect]
     Active Substance: DURVALUMAB
     Indication: HEPATOCELLULAR CARCINOMA
     Dosage: 1120.0MG ONCE/SINGLE ADMINISTRATION
     Route: 042
     Dates: start: 20210114, end: 20210114
  39. METHYLPREDNISOLONE. [Concomitant]
     Active Substance: METHYLPREDNISOLONE
     Indication: PROCTITIS
     Dosage: 120.0MG AS REQUIRED
     Route: 042
     Dates: start: 20210508, end: 20210508
  40. METHYLPREDNISOLONE. [Concomitant]
     Active Substance: METHYLPREDNISOLONE
     Indication: PROCTITIS
     Dosage: 40.0MG AS REQUIRED
     Route: 042
     Dates: start: 20210510, end: 20210510
  41. OMEPRAZOLE SODIUM [Concomitant]
     Active Substance: OMEPRAZOLE SODIUM
     Indication: GASTRIC PH DECREASED
     Route: 042
     Dates: start: 20210418, end: 20210429
  42. OMEPRAZOLE SODIUM [Concomitant]
     Active Substance: OMEPRAZOLE SODIUM
     Indication: PROPHYLAXIS
     Route: 042
     Dates: start: 20210506, end: 20210512
  43. PREDNISON [Concomitant]
     Active Substance: PREDNISONE
     Indication: COLITIS
     Dosage: 45.0MG ONCE/SINGLE ADMINISTRATION
     Route: 048
     Dates: start: 20210504, end: 20210504
  44. PREDNISON [Concomitant]
     Active Substance: PREDNISONE
     Indication: COLITIS
     Dosage: 60.0MG ONCE/SINGLE ADMINISTRATION
     Route: 048
     Dates: start: 20210505, end: 20210506

REACTIONS (1)
  - Gastrointestinal haemorrhage [Recovering/Resolving]

NARRATIVE: CASE EVENT DATE: 20210505
